FAERS Safety Report 5500229-5 (Version None)
Quarter: 2007Q4

REPORT INFORMATION
  Report Type: 
  Country: None (occurrence: None)
  Receive Date: 20071029
  Receipt Date: 20071019
  Transmission Date: 20080405
  Serious: Yes (Hospitalization)
  Sender: FDA-Public Use
  Company Number: US-JNJFOC-20071005563

PATIENT
  Sex: Female
  Weight: 83.46 kg

DRUGS (5)
  1. FENTANYL TRANSDERMAL SYSTEM [Suspect]
     Indication: PAIN
     Route: 062
  2. LABETALOL HCL [Concomitant]
     Indication: BLOOD PRESSURE
     Route: 048
  3. CLONIDINE [Concomitant]
     Indication: BLOOD PRESSURE
     Route: 048
  4. PERCOCET [Concomitant]
     Indication: BREAKTHROUGH PAIN
     Route: 048
  5. VALIUM [Concomitant]
     Indication: MYOCLONUS
     Route: 048

REACTIONS (4)
  - ANIMAL BITE [None]
  - DELUSION [None]
  - GASTROOESOPHAGEAL REFLUX DISEASE [None]
  - INAPPROPRIATE SCHEDULE OF DRUG ADMINISTRATION [None]
